FAERS Safety Report 4843843-2 (Version None)
Quarter: 2005Q4

REPORT INFORMATION
  Report Type: 
  Country: None (occurrence: None)
  Receive Date: 20051130
  Receipt Date: 20051130
  Transmission Date: 20060501
  Serious: No
  Sender: FDA-Public Use
  Company Number: None

PATIENT
  Age: 43 Year
  Sex: Male

DRUGS (11)
  1. PROVIGIL [Suspect]
     Indication: SOMNOLENCE
     Dosage: ONE PO Q AM
     Route: 048
     Dates: start: 20040101, end: 20050101
  2. PROVIGIL [Suspect]
  3. EFFEXOR [Concomitant]
  4. NEXIUM [Concomitant]
  5. CLONAZEPAM [Concomitant]
  6. SKELAXIN [Concomitant]
  7. REGLAN [Concomitant]
  8. ZYRTEC [Concomitant]
  9. SSRI [Concomitant]
  10. CLONAZEPAM/XANAX [Concomitant]
  11. AMBIEN [Concomitant]

REACTIONS (4)
  - ASTHENIA [None]
  - CONVULSION [None]
  - DYSPNOEA [None]
  - FALL [None]
